FAERS Safety Report 10354590 (Version 2)
Quarter: 2014Q3

REPORT INFORMATION
  Report Type: Report from Study
  Country: US (occurrence: US)
  Receive Date: 20140731
  Receipt Date: 20140908
  Transmission Date: 20150326
  Serious: Yes (Death)
  Sender: FDA-Public Use
  Company Number: PHEH2014US015226

PATIENT
  Sex: Male

DRUGS (1)
  1. EXJADE [Suspect]
     Active Substance: DEFERASIROX
     Indication: MYELODYSPLASTIC SYNDROME
     Dosage: 500 MG, DAILY (1 TABLET)
     Route: 048

REACTIONS (3)
  - Myelodysplastic syndrome [Fatal]
  - Disease progression [Fatal]
  - Myelofibrosis [Fatal]
